FAERS Safety Report 8049547-X (Version None)
Quarter: 2012Q1

REPORT INFORMATION
  Report Type: 
  Country: None (occurrence: None)
  Receive Date: 20120117
  Receipt Date: 20120111
  Transmission Date: 20120608
  Serious: Yes (Other)
  Sender: FDA-Public Use
  Company Number: US-ROCHE-794834

PATIENT
  Sex: Male
  Weight: 65.83 kg

DRUGS (3)
  1. ACCUTANE [Suspect]
     Dates: start: 20030415, end: 20030720
  2. ACCUTANE [Suspect]
     Dates: start: 20030909, end: 20031009
  3. ACCUTANE [Suspect]
     Indication: ACNE
     Dosage: 20MG AND 40 MG: STRENGTH
     Route: 065
     Dates: start: 20030221, end: 20030321

REACTIONS (5)
  - STRESS [None]
  - IRRITABLE BOWEL SYNDROME [None]
  - COLITIS ULCERATIVE [None]
  - INFLAMMATORY BOWEL DISEASE [None]
  - CROHN'S DISEASE [None]
